FAERS Safety Report 7167051-8 (Version None)
Quarter: 2010Q4

REPORT INFORMATION
  Report Type: 
  Country: None (occurrence: None)
  Receive Date: 20101216
  Receipt Date: 20101208
  Transmission Date: 20110411
  Serious: Yes (Hospitalization)
  Sender: FDA-Public Use
  Company Number: B0689229A

PATIENT
  Age: 72 Year
  Sex: Female

DRUGS (29)
  1. MELPHALAN [Suspect]
     Indication: MULTIPLE MYELOMA
     Dates: start: 20100827
  2. THALIDOMIDE [Suspect]
     Indication: MULTIPLE MYELOMA
     Dosage: 200MG PER DAY
     Route: 048
     Dates: start: 20100827
  3. PREDNISONE [Suspect]
     Indication: MULTIPLE MYELOMA
     Dates: start: 20100827
  4. LISINOPRIL [Concomitant]
     Indication: HYPERTENSION
     Dosage: 10MG PER DAY
     Route: 048
  5. SIMVASTATIN [Concomitant]
     Indication: HYPERLIPIDAEMIA
     Dosage: 40MG PER DAY
     Route: 048
  6. AMIODARONE [Concomitant]
     Indication: ARRHYTHMIA
     Dosage: 200MG PER DAY
     Route: 048
     Dates: start: 20040101
  7. METOPROLOL SUCCINATE [Concomitant]
     Indication: HYPERTENSION
     Dates: start: 20040101, end: 20101026
  8. TORSEMIDE [Concomitant]
     Indication: HYPERTENSION
     Dosage: 10MG PER DAY
     Route: 048
     Dates: start: 20100719
  9. CIPRAMIL [Concomitant]
     Indication: DEPRESSION
     Dosage: 20MG PER DAY
     Route: 048
     Dates: start: 20100501
  10. ASPIRIN [Concomitant]
     Indication: THROMBOSIS PROPHYLAXIS
     Dosage: 100MG PER DAY
     Route: 048
     Dates: start: 20100601
  11. VIANI DISKUS [Concomitant]
     Indication: DYSPNOEA
     Route: 048
     Dates: start: 20100501
  12. FERRLECIT [Concomitant]
     Indication: IRON DEFICIENCY ANAEMIA
     Dosage: 2MG PER DAY
     Route: 048
     Dates: start: 20090501
  13. ESTRADIOL [Concomitant]
     Indication: HORMONE REPLACEMENT THERAPY
  14. LENDORMIN [Concomitant]
     Indication: SLEEP DISORDER
     Dosage: .25MG AT NIGHT
     Route: 048
     Dates: start: 20100817, end: 20100818
  15. ESIDRIX [Concomitant]
     Indication: HYPERTENSION
     Dosage: 25MG PER DAY
     Route: 048
     Dates: start: 20100818, end: 20100819
  16. KONAKION [Concomitant]
     Indication: HAEMORRHAGE
     Route: 048
     Dates: start: 20100818, end: 20100819
  17. PANTOZOL [Concomitant]
     Indication: PROPHYLAXIS
     Dosage: 40MG PER DAY
     Route: 048
     Dates: start: 20100827
  18. VOLTAREN [Concomitant]
     Indication: PAIN
     Dosage: 150MG TWICE PER DAY
     Route: 048
     Dates: start: 20101025
  19. TAZOBAC [Concomitant]
     Indication: PNEUMONIA
     Dosage: 150MG TWICE PER DAY
     Route: 048
     Dates: start: 20101021, end: 20101026
  20. PARACODIN BITARTRATE TAB [Concomitant]
     Indication: COUGH
     Dosage: 15DROP PER DAY
     Route: 048
     Dates: start: 20101021, end: 20101027
  21. NOVALGIN [Concomitant]
     Indication: PAIN
     Route: 048
     Dates: start: 20101021, end: 20101024
  22. DIPIDOLOR [Concomitant]
     Indication: PAIN
     Route: 042
     Dates: start: 20101021, end: 20101022
  23. ATROVENT [Concomitant]
     Indication: DYSPNOEA
     Route: 055
     Dates: start: 20101021, end: 20101023
  24. HEPARIN [Concomitant]
     Indication: CONTUSION
     Dosage: 15000IU TWICE PER DAY
     Route: 058
     Dates: start: 20101022, end: 20101022
  25. DREISAFER [Concomitant]
     Indication: IRON DEFICIENCY ANAEMIA
     Dosage: 100MG PER DAY
     Route: 048
     Dates: start: 20101023, end: 20101028
  26. POTASSIUM CHLORIDE [Concomitant]
     Indication: PROPHYLAXIS
     Route: 048
     Dates: start: 20101025, end: 20101026
  27. CLEXANE [Concomitant]
     Indication: THROMBOSIS PROPHYLAXIS
     Route: 042
     Dates: start: 20101023, end: 20101028
  28. ZOPICLON [Concomitant]
     Indication: SLEEP DISORDER
     Dosage: 7.5MG AT NIGHT
     Route: 048
     Dates: start: 20101022, end: 20101027
  29. METOCLOPRAMIDE [Concomitant]
     Indication: NAUSEA
     Route: 042
     Dates: start: 20101024, end: 20101024

REACTIONS (2)
  - HYPOKALAEMIA [None]
  - VOMITING [None]
